FAERS Safety Report 4499645-2 (Version None)
Quarter: 2004Q4

REPORT INFORMATION
  Report Type: 
  Country: None (occurrence: None)
  Receive Date: 20041108
  Receipt Date: 20041025
  Transmission Date: 20050328
  Serious: Yes (Life-Threatening, Other)
  Sender: FDA-Public Use
  Company Number: 2004070902

PATIENT
  Age: 49 Year
  Sex: Female
  Weight: 53 kg

DRUGS (16)
  1. ZITHROMAX [Suspect]
     Indication: BRONCHITIS
     Dosage: 500 MG (500 MG,1  IN 1 D), ORAL
     Route: 048
     Dates: start: 20040826, end: 20040828
  2. ISOPRENALINE HCL [Suspect]
     Indication: BRADYCARDIA
     Dosage: 0.1 MG (0.1 MG, 1 IN 1 QD), ORAL
     Route: 048
     Dates: start: 20040901, end: 20040901
  3. CAPERITIDE (CAPERITIDE) [Suspect]
     Indication: CARDIAC FAILURE
     Dosage: INTRAVENOUS
     Route: 042
     Dates: start: 20040828, end: 20040831
  4. MIDAZOLAM HCL [Suspect]
     Indication: SEDATION
     Dosage: INTRAVENOUS
     Route: 042
     Dates: start: 20040827, end: 20040831
  5. ISOPRENALINE HCL [Suspect]
     Dosage: 0.1 MG (0.1 MG, QD), INTRAVENOUS
     Route: 042
  6. NITROGLYCERIN [Concomitant]
  7. ALL OTHER THERAPEUTIC PRODUCTS (ALL OTHER THERAPEUTIC PRODUCTS) [Concomitant]
  8. DESLANOSIDE (DESLANOSIDE) [Concomitant]
  9. VERAPAMIL HCL [Concomitant]
  10. DOBTAMINE HYDROCHLORIDE (DOBUTAMINE HYDROCHLORIDE) [Concomitant]
  11. DOPAMINERGIC AGENTS (DOPAMINERGIC AGENTS) [Concomitant]
  12. INSULIN HUMAN (INSULIN HUMAN) [Concomitant]
  13. INSULIN HUMAN INJECTION, ISOPHANE (INSULIN HUMAN INJECTION, ISOPHANE) [Concomitant]
  14. PREDNISOLONE [Concomitant]
  15. ABLUMIN HUMAN (ALBUMIN HUMAN) [Concomitant]
  16. CEFOZOPRAN HYDROCHLORIDE (CEFOZPRAN HYDROCHLORIDE) [Concomitant]

REACTIONS (10)
  - BLOOD CHLORIDE DECREASED [None]
  - BLOOD PRESSURE DECREASED [None]
  - BLOOD SODIUM DECREASED [None]
  - CARDIAC FAILURE [None]
  - ELECTROCARDIOGRAM QT CORRECTED INTERVAL PROLONGED [None]
  - HEART RATE INCREASED [None]
  - PNEUMONIA [None]
  - RESPIRATORY FAILURE [None]
  - SINUS BRADYCARDIA [None]
  - TORSADE DE POINTES [None]
